FAERS Safety Report 4588423-1 (Version None)
Quarter: 2005Q1

REPORT INFORMATION
  Report Type: 
  Country: None (occurrence: None)
  Receive Date: 20050218
  Receipt Date: 20050218
  Transmission Date: 20050727
  Serious: Yes (Other)
  Sender: FDA-Public Use
  Company Number: None

PATIENT
  Age: 5 Year
  Sex: Female
  Weight: 29.4838 kg

DRUGS (2)
  1. ADVIL [Suspect]
     Indication: HEADACHE
     Dates: start: 19910625, end: 19910626
  2. IBUPROFEN [Suspect]
     Indication: HEADACHE
     Dates: start: 19920527, end: 19920528

REACTIONS (3)
  - PHARMACEUTICAL PRODUCT COMPLAINT [None]
  - RASH [None]
  - URTICARIA [None]
